FAERS Safety Report 21176004 (Version 5)
Quarter: 2022Q4

REPORT INFORMATION
  Report Type: Spontaneous
  Country: US (occurrence: US)
  Receive Date: 20220805
  Receipt Date: 20221003
  Transmission Date: 20230113
  Serious: Yes (Other)
  Sender: FDA-Public Use
  Company Number: US-ORGANON-O2208USA000250

PATIENT
  Age: 26 Year
  Sex: Female
  Weight: 74.902 kg

DRUGS (1)
  1. NEXPLANON [Suspect]
     Active Substance: ETONOGESTREL
     Dosage: 1 IMPLANT (68 MG) IN THE LEFT ARM
     Route: 059
     Dates: start: 20220721, end: 20220801

REACTIONS (3)
  - Device expulsion [Recovered/Resolved]
  - Expired product administered [Unknown]
  - No adverse event [Unknown]

NARRATIVE: CASE EVENT DATE: 20220721
